FAERS Safety Report 23604394 (Version 1)
Quarter: 2024Q1

REPORT INFORMATION
  Report Type: Spontaneous
  Country: PL (occurrence: PL)
  Receive Date: 20240307
  Receipt Date: 20240307
  Transmission Date: 20240409
  Serious: Yes (Other)
  Sender: FDA-Public Use
  Company Number: PL-CELLTRION INC.-2024PL005303

PATIENT

DRUGS (3)
  1. TRASTUZUMAB [Suspect]
     Active Substance: TRASTUZUMAB
     Indication: Intestinal metastasis
  2. PERTUZUMAB [Suspect]
     Active Substance: PERTUZUMAB
     Indication: Intestinal metastasis
  3. DOCETAXEL [Suspect]
     Active Substance: DOCETAXEL\DOCETAXEL ANHYDROUS
     Indication: Intestinal metastasis

REACTIONS (3)
  - Polyneuropathy [Unknown]
  - Off label use [Unknown]
  - Intentional product use issue [Unknown]
